FAERS Safety Report 7334949-7 (Version None)
Quarter: 2011Q1

REPORT INFORMATION
  Report Type: 
  Country: None (occurrence: None)
  Receive Date: 20110223
  Receipt Date: 20100511
  Transmission Date: 20110831
  Serious: Yes (Other)
  Sender: FDA-Public Use
  Company Number: US-1181924

PATIENT
  Sex: Female
  Weight: 74.8435 kg

DRUGS (2)
  1. BETOPTIC S [Suspect]
     Dosage: (OPHTHALMIC), (4 GTT OPHTHALMIC)
     Route: 047
     Dates: start: 20020101, end: 20080101
  2. BETOPTIC S [Suspect]
     Dosage: (OPHTHALMIC), (4 GTT OPHTHALMIC)
     Route: 047
     Dates: start: 20080101

REACTIONS (2)
  - VISION BLURRED [None]
  - FOREIGN BODY SENSATION IN EYES [None]
